FAERS Safety Report 21406555 (Version 1)
Quarter: 2022Q4

REPORT INFORMATION
  Report Type: Spontaneous
  Country: NO (occurrence: NO)
  Receive Date: 20221004
  Receipt Date: 20221004
  Transmission Date: 20230113
  Serious: Yes (Other)
  Sender: FDA-Public Use
  Company Number: NO-NOVARTISPH-NVSC2022NO210249

PATIENT
  Age: 53 Year
  Sex: Female

DRUGS (1)
  1. BEOVU [Suspect]
     Active Substance: BROLUCIZUMAB-DBLL
     Indication: Product used for unknown indication
     Dosage: 6 MG (INJECTION)
     Route: 065
     Dates: start: 202205

REACTIONS (2)
  - Iridocyclitis [Recovered/Resolved]
  - Dry age-related macular degeneration [Recovered/Resolved]

NARRATIVE: CASE EVENT DATE: 20220601
